FAERS Safety Report 22153006 (Version 1)
Quarter: 2023Q1

REPORT INFORMATION
  Report Type: Spontaneous
  Country: US (occurrence: US)
  Receive Date: 20230329
  Receipt Date: 20230329
  Transmission Date: 20230418
  Serious: Yes (Death, Other)
  Sender: FDA-Public Use
  Company Number: US-MALLINCKRODT-MNK202300596

PATIENT
  Age: 44 Year
  Sex: Female

DRUGS (2)
  1. NITRIC OXIDE [Suspect]
     Active Substance: NITRIC OXIDE
     Indication: Pulmonary arterial hypertension
     Dosage: UNKNOWN (RESPIRATORY)
     Route: 055
  2. TREPROSTINIL [Concomitant]
     Active Substance: TREPROSTINIL
     Indication: Pulmonary arterial hypertension
     Dosage: UNKNOWN
     Route: 042

REACTIONS (9)
  - Death [Fatal]
  - Coronary artery compression [Unknown]
  - Pulmonary artery aneurysm [Unknown]
  - Hypoxia [Unknown]
  - Condition aggravated [Unknown]
  - Hypotension [Unknown]
  - Epistaxis [Unknown]
  - Therapy non-responder [Unknown]
  - Product use issue [Unknown]
